FAERS Safety Report 21184610 (Version 4)
Quarter: 2023Q2

REPORT INFORMATION
  Report Type: Report from Study
  Country: DE (occurrence: None)
  Receive Date: 20220808
  Receipt Date: 20230607
  Transmission Date: 20230721
  Serious: Yes (Hospitalization)
  Sender: FDA-Public Use
  Company Number: DE-ROCHE-3150253

PATIENT
  Age: 52 Year
  Sex: Female
  Weight: 63 kg

DRUGS (14)
  1. ATEZOLIZUMAB [Suspect]
     Active Substance: ATEZOLIZUMAB
     Indication: Triple negative breast cancer
     Dosage: ON 21/JUN/2022, DATE OF LAST DOSE PRIOR TO SAE
     Route: 041
     Dates: start: 20220329
  2. PACLITAXEL [Suspect]
     Active Substance: PACLITAXEL
     Indication: Triple negative breast cancer
     Dosage: ON 14/JUN/2022, DATE OF LAST DOSE PRIOR TO SAE
     Route: 042
     Dates: start: 20220329
  3. CARBOPLATIN [Suspect]
     Active Substance: CARBOPLATIN
     Indication: Triple negative breast cancer
     Dosage: ON 14/JUN/2022, DATE OF LAST DOSE PRIOR TO SAE
     Route: 042
     Dates: start: 20220329
  4. EPIRUBICIN [Suspect]
     Active Substance: EPIRUBICIN
     Indication: Triple negative breast cancer
     Dosage: DATE OF LAST DOSE PRIOR TO SAE: 21/JUN/2022
     Route: 042
     Dates: start: 20220621
  5. CYCLOPHOSPHAMIDE [Suspect]
     Active Substance: CYCLOPHOSPHAMIDE
     Indication: Triple negative breast cancer
     Dosage: DATE OF LAST DOSE PRIOR TO SAE: 21/JUN/2022
     Route: 042
     Dates: start: 20220621
  6. PANTOPRAZOLE [Concomitant]
     Active Substance: PANTOPRAZOLE
     Dosage: 20 MG ONCE DAILY
  7. BALDRIPARAN (GERMANY) [Concomitant]
     Dosage: 5 MG AS NEEDED
  8. IBUPROFEN [Concomitant]
     Active Substance: IBUPROFEN
     Dosage: 400 MG AS NEEDED
  9. MOVICOL [Concomitant]
     Active Substance: POLYETHYLENE GLYCOL 3350\POTASSIUM CHLORIDE\SODIUM BICARBONATE\SODIUM CHLORIDE
     Dosage: 13.8 GRAM AS NEEDED
     Dates: start: 20220413, end: 20220420
  10. UREA [Concomitant]
     Active Substance: UREA
     Dosage: 200 ML AS NEEDED
     Dates: start: 20220413, end: 20220420
  11. METROGEL [Concomitant]
     Active Substance: METRONIDAZOLE
     Dosage: 50 GRAM AS NEEDED
     Dates: start: 20220506, end: 20220920
  12. SOOLANTRA [Concomitant]
     Active Substance: IVERMECTIN
     Dosage: 10 MG/G AS NEEDED
     Dates: start: 20220506, end: 20220920
  13. DEXPANTHENOL [Concomitant]
     Active Substance: DEXPANTHENOL
     Dosage: 20 GRAM AS NEEDED
     Dates: start: 20220504, end: 20220920
  14. DESLORATADINE [Concomitant]
     Active Substance: DESLORATADINE

REACTIONS (1)
  - Neutropenia [Recovered/Resolved]

NARRATIVE: CASE EVENT DATE: 20220628
